FAERS Safety Report 5839772-8 (Version None)
Quarter: 2008Q3

REPORT INFORMATION
  Report Type: 
  Country: None (occurrence: None)
  Receive Date: 20080811
  Receipt Date: 20080801
  Transmission Date: 20090109
  Serious: Yes (Hospitalization)
  Sender: FDA-Public Use
  Company Number: FR-AVENTIS-200812064FR

PATIENT
  Age: 89 Year
  Sex: Male

DRUGS (10)
  1. LASIX [Suspect]
     Route: 048
  2. LOPRIL                             /00498401/ [Suspect]
     Route: 048
     Dates: end: 20080428
  3. VOLTAREN [Suspect]
     Route: 054
     Dates: start: 20080416, end: 20080428
  4. ALDACTAZINE [Suspect]
     Route: 048
     Dates: start: 20080416, end: 20080428
  5. NEXIUM [Suspect]
     Dates: start: 20080416, end: 20080428
  6. LOPERAMIDE HCL [Suspect]
     Dates: start: 20080416, end: 20080428
  7. HYZAAR [Suspect]
     Route: 048
     Dates: start: 20080414, end: 20080428
  8. STABLON [Suspect]
     Route: 048
     Dates: start: 20080414, end: 20080428
  9. VASTAREL [Suspect]
     Route: 048
     Dates: start: 20080414, end: 20080428
  10. DIGITALINE NATIVELLE [Suspect]
     Dates: start: 20080414, end: 20080428

REACTIONS (2)
  - HYPERKALAEMIA [None]
  - RENAL FAILURE ACUTE [None]
